FAERS Safety Report 11821745 (Version 1)
Quarter: 2015Q4

REPORT INFORMATION
  Report Type: Spontaneous
  Country: GB (occurrence: GB)
  Receive Date: 20151210
  Receipt Date: 20151210
  Transmission Date: 20160305
  Serious: Yes (Disabling)
  Sender: FDA-Public Use
  Company Number: GB-TEVA-614492ACC

PATIENT
  Age: 76 Year
  Sex: Female
  Weight: 70 kg

DRUGS (9)
  1. INSTILLAGEL [Concomitant]
     Active Substance: CHLORHEXIDINE GLUCONATE\LIDOCAINE HYDROCHLORIDE
     Dosage: 2 PREFILLED DISPOSABLE INJECTION
     Dates: start: 20150410
  2. OMEPRAZOLE. [Concomitant]
     Active Substance: OMEPRAZOLE
     Dates: start: 20150410
  3. PREDNISOLONE. [Concomitant]
     Active Substance: PREDNISOLONE
     Dates: start: 20150410
  4. ATORVASTATIN [Suspect]
     Active Substance: ATORVASTATIN
     Dates: start: 20150923
  5. BUDESONIDE. [Concomitant]
     Active Substance: BUDESONIDE
     Dosage: 1-2 PUFFS TWICE A DAY
     Route: 055
     Dates: start: 20150410
  6. TERBUTALINE [Concomitant]
     Active Substance: TERBUTALINE
     Route: 055
     Dates: start: 20150410
  7. HYDROCORTISONE. [Concomitant]
     Active Substance: HYDROCORTISONE
     Dates: start: 20150923, end: 20150924
  8. PARACETAMOL [Concomitant]
     Active Substance: ACETAMINOPHEN
     Dates: start: 20150410
  9. LEVOTHYROXINE. [Concomitant]
     Active Substance: LEVOTHYROXINE
     Dates: start: 20150410

REACTIONS (2)
  - Balance disorder [Recovering/Resolving]
  - Pain in extremity [Recovering/Resolving]

NARRATIVE: CASE EVENT DATE: 20151118
